FAERS Safety Report 4598260-X (Version None)
Quarter: 2005Q1

REPORT INFORMATION
  Report Type: 
  Country: None (occurrence: None)
  Receive Date: 20050304
  Receipt Date: 20050302
  Transmission Date: 20050727
  Serious: Yes (Other)
  Sender: FDA-Public Use
  Company Number: US-GLAXOSMITHKLINE-A0547983A

PATIENT
  Age: 11 Year
  Sex: Female

DRUGS (5)
  1. ADVAIR DISKUS 100/50 [Suspect]
     Indication: ASTHMA
     Dosage: 1PUFF TWICE PER DAY
     Route: 055
     Dates: start: 20041101, end: 20050221
  2. NORVIR [Concomitant]
  3. ZERIT [Concomitant]
  4. VIDEX [Concomitant]
  5. ALBUTEROL [Concomitant]

REACTIONS (5)
  - BLOOD CHOLESTEROL INCREASED [None]
  - BLOOD TRIGLYCERIDES INCREASED [None]
  - FACE OEDEMA [None]
  - HEADACHE [None]
  - HEPATIC ENZYME INCREASED [None]
